FAERS Safety Report 18680803 (Version 1)
Quarter: 2020Q4

REPORT INFORMATION
  Report Type: Spontaneous
  Country: US (occurrence: US)
  Receive Date: 20201229
  Receipt Date: 20201229
  Transmission Date: 20210114
  Serious: Yes (Death)
  Sender: FDA-Public Use
  Company Number: US-AZURITY PHARMACEUTICALS, INC.-2020AZY00081

PATIENT

DRUGS (1)
  1. EPANED [Suspect]
     Active Substance: ENALAPRIL MALEATE

REACTIONS (1)
  - Death [Fatal]
